FAERS Safety Report 5041873-1 (Version None)
Quarter: 2006Q2

REPORT INFORMATION
  Report Type: 
  Country: None (occurrence: None)
  Receive Date: 20060630
  Receipt Date: 20060621
  Transmission Date: 20061013
  Serious: Yes (Hospitalization)
  Sender: FDA-Public Use
  Company Number: 2006US001346

PATIENT
  Age: 33 Year
  Sex: Female

DRUGS (8)
  1. PROGRAF [Suspect]
     Indication: PROPHYLAXIS AGAINST TRANSPLANT REJECTION
     Dosage: 2 MG, BID, ORAL
     Route: 048
     Dates: start: 20060418
  2. MYCOPHENOLATE MOFETIL [Suspect]
     Indication: PROPHYLAXIS AGAINST TRANSPLANT REJECTION
     Dosage: 500 MG, BID, ORAL
     Route: 048
     Dates: start: 20060111
  3. PREDNISONE (PREDNISONE ACETATE) [Concomitant]
  4. NEXIUM [Concomitant]
  5. BACTRIM (TRIMETHOPRIM) [Concomitant]
  6. FERROUS SULFATE TAB [Concomitant]
  7. AMBIEN [Concomitant]
  8. OSCAL [Concomitant]

REACTIONS (1)
  - PELVIC PAIN [None]
